FAERS Safety Report 7348566-6 (Version None)
Quarter: 2011Q1

REPORT INFORMATION
  Report Type: 
  Country: None (occurrence: None)
  Receive Date: 20110314
  Receipt Date: 20110303
  Transmission Date: 20110831
  Serious: Yes (Hospitalization)
  Sender: FDA-Public Use
  Company Number: US-BIOGENIDEC-2010BI033910

PATIENT
  Age: 57 Year
  Sex: Female
  Weight: 80 kg

DRUGS (9)
  1. LEXAPRO [Concomitant]
  2. BACLOFEN [Concomitant]
     Indication: NEUROPATHY PERIPHERAL
  3. ARICEPT [Concomitant]
  4. SYNTHROID [Concomitant]
  5. PREMARIN [Concomitant]
  6. AVONEX [Suspect]
     Indication: MULTIPLE SCLEROSIS
     Route: 030
     Dates: start: 19970601
  7. AVONEX [Suspect]
     Route: 030
  8. LIPITOR [Concomitant]
  9. LORTAB [Concomitant]

REACTIONS (12)
  - OVARIAN CANCER [None]
  - LOCALISED INTRAABDOMINAL FLUID COLLECTION [None]
  - CENTRAL VENOUS CATHETERISATION [None]
  - WHITE BLOOD CELL COUNT DECREASED [None]
  - PROCEDURAL PAIN [None]
  - FATIGUE [None]
  - VAGINAL NEOPLASM [None]
  - PELVIC FLUID COLLECTION [None]
  - WEIGHT INCREASED [None]
  - HYPERTENSION [None]
  - INFLUENZA LIKE ILLNESS [None]
  - PLATELET COUNT DECREASED [None]
